FAERS Safety Report 4687038-4 (Version None)
Quarter: 2005Q2

REPORT INFORMATION
  Report Type: 
  Country: None (occurrence: None)
  Receive Date: 20050608
  Receipt Date: 20050525
  Transmission Date: 20051028
  Serious: Yes (Hospitalization)
  Sender: FDA-Public Use
  Company Number: 8010788

PATIENT
  Age: 44 Year
  Sex: Female
  Weight: 52 kg

DRUGS (6)
  1. KEPPRA [Suspect]
     Indication: EPILEPSY
     Dosage: 500MG/D PO
     Route: 048
     Dates: start: 20040216, end: 20040514
  2. KEPPRA [Suspect]
     Indication: EPILEPSY
     Dosage: 3000MG/D PO
     Route: 048
     Dates: start: 20040515, end: 20041101
  3. KEPPRA [Suspect]
     Indication: EPILEPSY
     Dosage: 3000MG/D PO
     Route: 048
     Dates: start: 20040515, end: 20041101
  4. VALPROATE SODIUM [Concomitant]
  5. TOPIRAMATE [Concomitant]
  6. RIZATRIPTAN [Concomitant]

REACTIONS (1)
  - HOSPITALISATION [None]
